FAERS Safety Report 10795266 (Version 1)
Quarter: 2015Q1

REPORT INFORMATION
  Report Type: Spontaneous
  Country: US (occurrence: US)
  Receive Date: 20150214
  Receipt Date: 20150214
  Transmission Date: 20150721
  Serious: No
  Sender: FDA-Public Use
  Company Number: US-GLAXOSMITHKLINE-A1070615A

PATIENT

DRUGS (8)
  1. BLOOD THINNER [Concomitant]
     Active Substance: UNSPECIFIED INGREDIENT
  2. VENTOLIN [Suspect]
     Active Substance: ALBUTEROL SULFATE
     Indication: CHRONIC OBSTRUCTIVE PULMONARY DISEASE
     Route: 055
     Dates: start: 2013
  3. SPIRIVA [Suspect]
     Active Substance: TIOTROPIUM BROMIDE MONOHYDRATE
     Indication: CHRONIC OBSTRUCTIVE PULMONARY DISEASE
     Dates: start: 2013
  4. WATER PILL [Concomitant]
     Active Substance: UNSPECIFIED INGREDIENT
  5. IRON [Concomitant]
     Active Substance: IRON
  6. MEDICATION FOR HIGH BLOOD PRESSURE [Concomitant]
     Active Substance: UNSPECIFIED INGREDIENT
  7. VITAMIN D [Concomitant]
     Active Substance: CHOLECALCIFEROL
  8. POTASSIUM [Concomitant]
     Active Substance: POTASSIUM

REACTIONS (4)
  - Fatigue [Unknown]
  - Depression [Unknown]
  - Dyspnoea [Unknown]
  - Hiatus hernia [Unknown]
